FAERS Safety Report 8362234-3 (Version None)
Quarter: 2012Q2

REPORT INFORMATION
  Report Type: 
  Country: None (occurrence: None)
  Receive Date: 20120515
  Receipt Date: 20120511
  Transmission Date: 20120825
  Serious: Yes (Hospitalization)
  Sender: FDA-Public Use
  Company Number: US-BAYER-2012-047034

PATIENT
  Age: 27 Year
  Sex: Female

DRUGS (3)
  1. ZOLOFT [Concomitant]
     Dosage: 100 MG, PER DAY
     Route: 048
  2. YAZ [Suspect]
  3. ALPRAZOLAM [Concomitant]
     Dosage: 0.5 MG, AS NEEDED
     Route: 048

REACTIONS (1)
  - PULMONARY EMBOLISM [None]
